FAERS Safety Report 6195604-2 (Version None)
Quarter: 2009Q2

REPORT INFORMATION
  Report Type: 
  Country: None (occurrence: None)
  Receive Date: 20090519
  Receipt Date: 20090511
  Transmission Date: 20091009
  Serious: Yes (Other)
  Sender: FDA-Public Use
  Company Number: PHEH2009US04638

PATIENT
  Sex: Female

DRUGS (1)
  1. ZADITOR [Suspect]
     Dosage: UNK
     Dates: start: 20090511

REACTIONS (1)
  - VISUAL FIELD DEFECT [None]
